FAERS Safety Report 14307533 (Version 1)
Quarter: 2017Q4

REPORT INFORMATION
  Report Type: Spontaneous
  Country: US (occurrence: US)
  Receive Date: 20171219
  Receipt Date: 20171219
  Transmission Date: 20180321
  Serious: No
  Sender: FDA-Public Use
  Company Number: None

PATIENT
  Age: 37 Year
  Sex: Female
  Weight: 69.75 kg

DRUGS (1)
  1. ABREVA [Suspect]
     Active Substance: DOCOSANOL
     Indication: ORAL HERPES
     Dosage: ?          QUANTITY:1 PUMP;?
     Route: 061

REACTIONS (1)
  - Condition aggravated [None]

NARRATIVE: CASE EVENT DATE: 20171213
